FAERS Safety Report 6238146-8 (Version None)
Quarter: 2009Q2

REPORT INFORMATION
  Report Type: 
  Country: None (occurrence: None)
  Receive Date: 20090622
  Receipt Date: 20090610
  Transmission Date: 20091009
  Serious: Yes (Hospitalization)
  Sender: FDA-Public Use
  Company Number: GR-JNJFOC-20090606718

PATIENT
  Age: 32 Year
  Sex: Female

DRUGS (10)
  1. HALOPERIDOL [Suspect]
     Route: 065
  2. HALOPERIDOL [Suspect]
     Dosage: 10-30 MG PER DAY
     Route: 065
  3. HALOPERIDOL [Suspect]
     Indication: PSYCHOTIC DISORDER
     Route: 065
  4. RISPERIDONE [Suspect]
     Indication: PSYCHOTIC DISORDER
     Dosage: 6-8 MG PER DAY
     Route: 065
  5. TOPIRAMATE [Suspect]
     Indication: CONVULSION PROPHYLAXIS
     Route: 065
  6. OLANZAPINE [Suspect]
     Indication: PSYCHOTIC DISORDER
     Route: 065
  7. OXCARBAZEPINE [Suspect]
     Indication: CONVULSION PROPHYLAXIS
     Route: 065
  8. PHENYTOIN [Suspect]
     Indication: CONVULSION PROPHYLAXIS
     Route: 065
  9. LEVETIRACETAM [Suspect]
     Indication: CONVULSION PROPHYLAXIS
     Route: 065
  10. GABAPENTIN [Suspect]
     Indication: CONVULSION PROPHYLAXIS
     Route: 065

REACTIONS (3)
  - COMPLEX PARTIAL SEIZURES [None]
  - DRUG RESISTANCE [None]
  - PSYCHOTIC DISORDER [None]
